FAERS Safety Report 22299274 (Version 1)
Quarter: 2023Q2

REPORT INFORMATION
  Report Type: Other
  Country: None (occurrence: RS)
  Receive Date: 20230509
  Receipt Date: 20230509
  Transmission Date: 20230721
  Serious: Yes (Death, Hospitalization, Other)
  Sender: FDA-Public Use
  Company Number: RS-Breckenridge Pharmaceutical, Inc.-2141281

PATIENT
  Age: 71 Year
  Sex: Female

DRUGS (5)
  1. DULOXETINE [Suspect]
     Active Substance: DULOXETINE
     Indication: Depression
     Route: 048
  2. RASAGILINE [Interacting]
     Active Substance: RASAGILINE
  3. CARBIDOPA, LEVODOPA AND ENTACAPONE [Concomitant]
     Active Substance: CARBIDOPA\ENTACAPONE\LEVODOPA
  4. ROPINIROLE [Concomitant]
     Active Substance: ROPINIROLE
  5. BENSERAZIDE [Concomitant]
     Active Substance: BENSERAZIDE

REACTIONS (4)
  - Serotonin syndrome [Fatal]
  - Death [Fatal]
  - Cytotoxic oedema [Fatal]
  - Drug interaction [Fatal]
